FAERS Safety Report 22650778 (Version 1)
Quarter: 2023Q2

REPORT INFORMATION
  Report Type: Report from Study
  Country: CN (occurrence: CN)
  Receive Date: 20230628
  Receipt Date: 20230628
  Transmission Date: 20230722
  Serious: Yes (Other)
  Sender: FDA-Public Use
  Company Number: CN-SUN PHARMACEUTICAL INDUSTRIES LTD-2023R1-396795

PATIENT

DRUGS (5)
  1. DOXORUBICIN [Suspect]
     Active Substance: DOXORUBICIN
     Indication: Peripheral T-cell lymphoma unspecified
     Dosage: 50 MILLIGRAM/SQ. METER
     Route: 042
  2. VINCRISTINE [Suspect]
     Active Substance: VINCRISTINE
     Indication: Peripheral T-cell lymphoma unspecified
     Dosage: 1.4 MILLIGRAM/SQ. METER
     Route: 042
  3. PREDNISONE [Suspect]
     Active Substance: PREDNISONE
     Indication: Peripheral T-cell lymphoma unspecified
     Dosage: 100 MILLIGRAM, QD
     Route: 048
  4. CYCLOPHOSPHAMIDE [Suspect]
     Active Substance: CYCLOPHOSPHAMIDE
     Indication: Peripheral T-cell lymphoma unspecified
     Dosage: 750 MILLIGRAM/SQ. METER
     Route: 042
  5. TUCIDINOSTAT [Suspect]
     Active Substance: TUCIDINOSTAT
     Indication: Peripheral T-cell lymphoma unspecified
     Dosage: UNK
     Route: 048

REACTIONS (1)
  - Peripheral sensorimotor neuropathy [Unknown]
